FAERS Safety Report 11688493 (Version 2)
Quarter: 2015Q4

REPORT INFORMATION
  Report Type: Report from Study
  Country: US (occurrence: US)
  Receive Date: 20151101
  Receipt Date: 20151102
  Transmission Date: 20160304
  Serious: No
  Sender: FDA-Public Use
  Company Number: US-ASTRAZENECA-2015SF03133

PATIENT
  Sex: Female

DRUGS (2)
  1. MOVANTIK [Suspect]
     Active Substance: NALOXEGOL OXALATE
     Indication: CONSTIPATION
     Route: 048
     Dates: start: 201510, end: 201510
  2. BUPRENORPHINE. [Concomitant]
     Active Substance: BUPRENORPHINE

REACTIONS (5)
  - Dysphoria [Unknown]
  - Pain [Unknown]
  - Hyperhidrosis [Unknown]
  - Confusional state [Unknown]
  - Feeling abnormal [Unknown]

NARRATIVE: CASE EVENT DATE: 201510
